FAERS Safety Report 4459833-8 (Version None)
Quarter: 2004Q3

REPORT INFORMATION
  Report Type: 
  Country: None (occurrence: None)
  Receive Date: 20040923
  Receipt Date: 20040913
  Transmission Date: 20050211
  Serious: Yes (Death, Hospitalization, Other)
  Sender: FDA-Public Use
  Company Number: US-JNJFOC-20040903443

PATIENT
  Age: 34 Year
  Sex: Male

DRUGS (1)
  1. EXTRA STRENGTH TYLENOL PM (ACETAMINOPHEN/DIPHENHYDRAMINE HCL) [Suspect]
     Indication: SUICIDE ATTEMPT
     Dosage: 150 DOSE (S), ORAL
     Route: 048

REACTIONS (10)
  - ALANINE AMINOTRANSFERASE INCREASED [None]
  - ASPARTATE AMINOTRANSFERASE INCREASED [None]
  - BLOOD GLUCOSE DECREASED [None]
  - CONFUSIONAL STATE [None]
  - GASTROINTESTINAL HAEMORRHAGE [None]
  - HAEMATURIA [None]
  - INTERNATIONAL NORMALISED RATIO INCREASED [None]
  - LETHARGY [None]
  - OVERDOSE [None]
  - PROTHROMBIN TIME PROLONGED [None]
